FAERS Safety Report 24140860 (Version 1)
Quarter: 2024Q3

REPORT INFORMATION
  Report Type: Report from Study
  Country: PR (occurrence: PR)
  Receive Date: 20240726
  Receipt Date: 20240726
  Transmission Date: 20241017
  Serious: Yes (Hospitalization)
  Sender: EISAI
  Company Number: PR-Eisai-EC-2024-168388

PATIENT
  Age: 76 Year
  Sex: Female
  Weight: 63.5 kg

DRUGS (3)
  1. LENVIMA [Suspect]
     Active Substance: LENVATINIB
     Indication: Tongue neoplasm malignant stage unspecified
     Route: 048
     Dates: start: 20240626, end: 202407
  2. KEYTRUDA [Concomitant]
     Active Substance: PEMBROLIZUMAB
     Dosage: DOSE AND FREQUENCY UNKNOWN
     Route: 042
  3. XGEVA [Concomitant]
     Active Substance: DENOSUMAB
     Dosage: DOSE AND FREQUENCY UNKNOWN

REACTIONS (13)
  - Gastrointestinal inflammation [Unknown]
  - Respiratory arrest [Unknown]
  - Off label use [Unknown]
  - Hypertension [Unknown]
  - Abdominal discomfort [Unknown]
  - Decreased appetite [Unknown]
  - Oropharyngeal plaque [Unknown]
  - Heart rate increased [Unknown]
  - Pain [Unknown]
  - Dysphagia [Unknown]
  - Pain in jaw [Not Recovered/Not Resolved]
  - Fungal infection [Unknown]
  - Stomatitis [Not Recovered/Not Resolved]

NARRATIVE: CASE EVENT DATE: 20240101
